FAERS Safety Report 9718617 (Version 1)
Quarter: 2013Q4

REPORT INFORMATION
  Report Type: Spontaneous
  Country: US (occurrence: US)
  Receive Date: 20131125
  Receipt Date: 20131125
  Transmission Date: 20140711
  Serious: No
  Sender: FDA-Public Use
  Company Number: US-VIVUS-2012V1000314

PATIENT
  Sex: Male
  Weight: 107.14 kg

DRUGS (3)
  1. QSYMIA 3.75MG/23MG [Suspect]
     Indication: WEIGHT DECREASED
     Route: 048
     Dates: start: 2012, end: 2012
  2. QSYMIA 7.5MG/46MG [Suspect]
     Indication: WEIGHT DECREASED
     Route: 048
     Dates: start: 2012, end: 2012
  3. UNSPECIFIED MEDICATION FOR HYPERTENSION [Concomitant]
     Indication: HYPERTENSION

REACTIONS (1)
  - Feeling abnormal [Recovered/Resolved]
